FAERS Safety Report 12725104 (Version 1)
Quarter: 2016Q3

REPORT INFORMATION
  Report Type: Spontaneous
  Country: US (occurrence: US)
  Receive Date: 20160908
  Receipt Date: 20160908
  Transmission Date: 20161109
  Serious: No
  Sender: FDA-Public Use
  Company Number: US-ASTRAZENECA-2016SE90957

PATIENT
  Age: 856 Month
  Sex: Female
  Weight: 70.3 kg

DRUGS (2)
  1. MELOXICAM. [Concomitant]
     Active Substance: MELOXICAM
     Indication: MYALGIA
     Dates: start: 201509
  2. ARIMIDEX [Suspect]
     Active Substance: ANASTROZOLE
     Indication: OESTROGEN RECEPTOR POSITIVE BREAST CANCER
     Route: 048
     Dates: start: 20120701, end: 201509

REACTIONS (3)
  - Muscular weakness [Unknown]
  - Arthralgia [Unknown]
  - Pain in extremity [Unknown]

NARRATIVE: CASE EVENT DATE: 201509
